FAERS Safety Report 19486337 (Version 2)
Quarter: 2021Q3

REPORT INFORMATION
  Report Type: Spontaneous
  Country: US (occurrence: US)
  Receive Date: 20210702
  Receipt Date: 20210827
  Transmission Date: 20211014
  Serious: Yes (Other)
  Sender: FDA-Public Use
  Company Number: US-BIOVITRUM-2021US6490

PATIENT
  Age: 19 Year
  Sex: Male

DRUGS (2)
  1. KINERET [Suspect]
     Active Substance: ANAKINRA
     Indication: CRYOPYRIN ASSOCIATED PERIODIC SYNDROME
     Dosage: 800 MILLIGRAM ON DAYS WITH FLARE SYMPTOMS.
     Route: 058
     Dates: start: 20190405
  2. PFIZER?BIONTECH COVID?19 VACCINE [Suspect]
     Active Substance: TOZINAMERAN

REACTIONS (3)
  - Off label use [Unknown]
  - Condition aggravated [Unknown]
  - Cryopyrin associated periodic syndrome [Unknown]

NARRATIVE: CASE EVENT DATE: 20190405
